FAERS Safety Report 5561037-2 (Version None)
Quarter: 2007Q4

REPORT INFORMATION
  Report Type: 
  Country: None (occurrence: None)
  Receive Date: 20071215
  Receipt Date: 20071129
  Transmission Date: 20080405
  Serious: No
  Sender: FDA-Public Use
  Company Number: US-ABBOTT-07P-163-0427138-00

PATIENT
  Sex: Male

DRUGS (2)
  1. HUMIRA [Suspect]
     Indication: PSORIATIC ARTHROPATHY
     Dosage: SYRINGE
     Route: 058
     Dates: start: 20060501, end: 20070101
  2. HUMIRA [Suspect]
     Indication: PSORIASIS
     Dosage: PEN
     Route: 058
     Dates: start: 20070101

REACTIONS (5)
  - HEADACHE [None]
  - INJECTION SITE BRUISING [None]
  - INJECTION SITE PAIN [None]
  - PAIN IN EXTREMITY [None]
  - PAIN OF SKIN [None]
